FAERS Safety Report 20661758 (Version 1)
Quarter: 2022Q2

REPORT INFORMATION
  Report Type: Report from Study
  Country: DZ (occurrence: DZ)
  Receive Date: 20220401
  Receipt Date: 20220401
  Transmission Date: 20220720
  Serious: Yes (Death, Other)
  Sender: FDA-Public Use
  Company Number: DZ-CIPLA LTD.-2022DZ02036

PATIENT

DRUGS (5)
  1. BEVACIZUMAB [Suspect]
     Active Substance: BEVACIZUMAB
     Indication: Colorectal cancer metastatic
     Dosage: 210 (UNSPECIFIED UNITS), 15-DAY
     Route: 042
     Dates: start: 20210314, end: 20210506
  2. IRINOTECAN [Suspect]
     Active Substance: IRINOTECAN
     Indication: Colorectal cancer metastatic
     Dosage: 100 (UNITS UNSPECIFIED), 15-DAY
     Route: 042
  3. FLUOROURACIL [Suspect]
     Active Substance: FLUOROURACIL
     Indication: Colorectal cancer metastatic
     Dosage: 400 (UNITS UNSPECIFED), 15-DAY, BOLUS
     Route: 042
  4. FLUOROURACIL [Suspect]
     Active Substance: FLUOROURACIL
     Dosage: 600 (UNITS UNSPECIFIED), 15-DAY, CONTINUOUS
     Route: 042
  5. ATROPINE [Suspect]
     Active Substance: ATROPINE
     Indication: Colorectal cancer metastatic
     Dosage: UNK, 15 DAY
     Route: 042

REACTIONS (1)
  - Malignant neoplasm progression [Fatal]

NARRATIVE: CASE EVENT DATE: 20210506
